FAERS Safety Report 6311386-5 (Version None)
Quarter: 2009Q3

REPORT INFORMATION
  Report Type: 
  Country: None (occurrence: None)
  Receive Date: 20090817
  Receipt Date: 20090806
  Transmission Date: 20100115
  Serious: Yes (Hospitalization, Other)
  Sender: FDA-Public Use
  Company Number: FR-BAYER-200927758GPV

PATIENT
  Age: 38 Year
  Sex: Male

DRUGS (9)
  1. GLUCOR [Suspect]
     Indication: TYPE 2 DIABETES MELLITUS
     Dosage: TOTAL DAILY DOSE: 3 DF
     Route: 048
     Dates: end: 20090628
  2. METFORMIN [Interacting]
     Indication: TYPE 2 DIABETES MELLITUS
     Dosage: TOTAL DAILY DOSE: 3 DF
     Route: 048
     Dates: end: 20090628
  3. AMAREL [Interacting]
     Indication: TYPE 2 DIABETES MELLITUS
     Dosage: TOTAL DAILY DOSE: 1 DF
     Route: 048
     Dates: end: 20090628
  4. NOZINAN [Concomitant]
  5. TERCIAN [Concomitant]
  6. MICROPAKINE [Concomitant]
  7. ATENOLOL [Concomitant]
  8. RAMIPRIL [Concomitant]
  9. DEPAKENE [Concomitant]

REACTIONS (6)
  - BLOOD CREATININE INCREASED [None]
  - CONVULSION [None]
  - CREATININE RENAL CLEARANCE DECREASED [None]
  - DEHYDRATION [None]
  - HYPOGLYCAEMIA [None]
  - RENAL FAILURE ACUTE [None]
